FAERS Safety Report 8494383-3 (Version None)
Quarter: 2012Q2

REPORT INFORMATION
  Report Type: 
  Country: None (occurrence: None)
  Receive Date: 20120405
  Receipt Date: 20081204
  Transmission Date: 20120825
  Serious: Yes (Hospitalization, Disabling)
  Sender: FDA-Public Use
  Company Number: PHEH2008US10825

PATIENT
  Sex: Female

DRUGS (12)
  1. COREG [Concomitant]
  2. PREMARIN [Concomitant]
  3. CALCIUM CARBONATE [Concomitant]
  4. CITRUCEL (METHYLCELLULOSE) [Concomitant]
  5. RECLAST [Suspect]
     Indication: OSTEOPOROSIS
     Dosage: 5 MG
     Dates: start: 20081104
  6. ENALAPRIL MALEATE [Concomitant]
  7. LASIX [Concomitant]
  8. PERDIEM (PSYLLIUM HYDROPHILIC MUCILLOD, SENNA ALEXANDRINA FRUIT, SENNA [Concomitant]
  9. PRILOSEC [Concomitant]
  10. XANAX [Concomitant]
  11. ACETAMINOPHEN [Concomitant]
  12. SIMVASTATIN [Concomitant]

REACTIONS (4)
  - BONE PAIN [None]
  - ARTHRALGIA [None]
  - VOMITING [None]
  - NAUSEA [None]
